FAERS Safety Report 5205828-6 (Version None)
Quarter: 2007Q1

REPORT INFORMATION
  Report Type: 
  Country: None (occurrence: None)
  Receive Date: 20070105
  Receipt Date: 20070105
  Transmission Date: 20070707
  Serious: Yes (Life-Threatening)
  Sender: FDA-Public Use
  Company Number: None

PATIENT
  Sex: Male
  Weight: 62.1 kg

DRUGS (1)
  1. NIMBEX [Suspect]
     Indication: PARALYSIS
     Dosage: 10 MG ONCE IV BOLUS
     Route: 040
     Dates: start: 20061227, end: 20061227

REACTIONS (3)
  - CONVULSION [None]
  - INCORRECT DOSE ADMINISTERED [None]
  - TREMOR [None]
